FAERS Safety Report 5694226-7 (Version None)
Quarter: 2008Q2

REPORT INFORMATION
  Report Type: 
  Country: None (occurrence: None)
  Receive Date: 20080403
  Receipt Date: 20080403
  Transmission Date: 20081010
  Serious: Yes (Hospitalization, Other)
  Sender: FDA-Public Use
  Company Number: None

PATIENT
  Age: 53 Year
  Sex: Female
  Weight: 56.6996 kg

DRUGS (7)
  1. CVS SENNA PLUS DSS 50 MG, SENNOSIDES 8.6 MG TIME-CAP LABS/ PL DEVELOPM [Suspect]
     Indication: CONSTIPATION
     Dosage: 4 TABLETS BID PO
     Route: 048
     Dates: start: 20080211, end: 20080212
  2. OXYCONTIN [Concomitant]
  3. LYRICA [Concomitant]
  4. TOPAMAX [Concomitant]
  5. SALFLEX [Concomitant]
  6. TRESIDONE [Concomitant]
  7. ULTRAM ER [Concomitant]

REACTIONS (4)
  - BLOOD POTASSIUM DECREASED [None]
  - DEHYDRATION [None]
  - MALAISE [None]
  - PHARMACEUTICAL PRODUCT COMPLAINT [None]
